FAERS Safety Report 6393890-7 (Version None)
Quarter: 2009Q4

REPORT INFORMATION
  Report Type: 
  Country: None (occurrence: None)
  Receive Date: 20091008
  Receipt Date: 20091001
  Transmission Date: 20100525
  Serious: Yes (Other)
  Sender: FDA-Public Use
  Company Number: BR-AVENTIS-200920652GDDC

PATIENT
  Age: 53 Year
  Sex: Female
  Weight: 47 kg

DRUGS (14)
  1. LANTUS [Suspect]
     Route: 058
     Dates: start: 20030101
  2. OPTIPEN (INSULIN PUMP) [Suspect]
     Dates: start: 20030101
  3. NOVORAPID [Concomitant]
     Dosage: DOSE: ACCORDING TO GLYCEMIA
     Route: 058
  4. APRESOLINA [Concomitant]
     Indication: BLOOD PRESSURE
     Dosage: DOSE: 3 TABS
     Route: 048
  5. ALDOMET                            /00000101/ [Concomitant]
     Indication: BLOOD PRESSURE
     Dosage: DOSE: 3 TABS
     Route: 048
  6. SIMVASTATIN [Concomitant]
     Dosage: DOSE: 1 TAB
     Route: 048
  7. UNKNOWN DRUG [Concomitant]
     Dosage: DOSE: 1 TAB
     Route: 048
  8. TEGRETOL [Concomitant]
     Indication: DIABETIC NEUROPATHY
     Dosage: DOSE: 2 TABS
     Route: 048
  9. EPOGEN [Concomitant]
  10. PROPRANOLOL [Concomitant]
     Indication: ARRHYTHMIA
     Dosage: DOSE: 1 TAB
     Route: 048
  11. BROMAZEPAM [Concomitant]
     Indication: DEPRESSION
     Dosage: DOSE: 1 TAB
     Route: 048
  12. FUROSEMIDE [Concomitant]
     Dosage: DOSE: 1 TAB
     Route: 048
  13. FERROUS SULFATE TAB [Concomitant]
     Dosage: DOSE: WITH VITAMIN B SUBSTANCES
     Route: 048
  14. VITAMIN B NOS [Concomitant]
     Dosage: DOSE: WITH FERROUS SULFATE
     Route: 048

REACTIONS (6)
  - ASTHENIA [None]
  - CONDITION AGGRAVATED [None]
  - HYPOGLYCAEMIA [None]
  - PRODUCT QUALITY ISSUE [None]
  - RENAL FAILURE CHRONIC [None]
  - VISUAL IMPAIRMENT [None]
